FAERS Safety Report 14681926 (Version 3)
Quarter: 2018Q2

REPORT INFORMATION
  Report Type: Report from Study
  Country: US (occurrence: US)
  Receive Date: 20180326
  Receipt Date: 20180503
  Transmission Date: 20180711
  Serious: Yes (Hospitalization)
  Sender: FDA-Public Use
  Company Number: US-ACTELION-A-NJ2018-167994

PATIENT
  Age: 74 Year
  Sex: Female
  Weight: 72.56 kg

DRUGS (6)
  1. ADEMPAS [Suspect]
     Active Substance: RIOCIGUAT
     Indication: PULMONARY ARTERIAL HYPERTENSION
     Dosage: 1 MG, UNK
     Route: 065
  2. ADEMPAS [Suspect]
     Active Substance: RIOCIGUAT
     Dosage: 0.5 MG, TID
     Route: 065
     Dates: start: 20180201
  3. AMLODIPINE [Concomitant]
     Active Substance: AMLODIPINE BESYLATE
  4. UPTRAVI [Suspect]
     Active Substance: SELEXIPAG
     Indication: PULMONARY ARTERIAL HYPERTENSION
     Dosage: 200 MCG, BID
     Route: 048
  5. UPTRAVI [Suspect]
     Active Substance: SELEXIPAG
     Dosage: 200 MCG, BID
     Route: 048
     Dates: start: 20180301
  6. OPSUMIT [Concomitant]
     Active Substance: MACITENTAN
     Dosage: 10 MG, QD
     Route: 048
     Dates: start: 20180401

REACTIONS (15)
  - Swelling [Recovering/Resolving]
  - Headache [Unknown]
  - Weight decreased [Recovering/Resolving]
  - Oxygen saturation decreased [Unknown]
  - Ear haemorrhage [Unknown]
  - Oedema peripheral [Recovering/Resolving]
  - Blood pressure orthostatic decreased [Not Recovered/Not Resolved]
  - Fluid retention [Recovering/Resolving]
  - Oedema [Recovering/Resolving]
  - Dizziness [Not Recovered/Not Resolved]
  - Back pain [Unknown]
  - Nausea [Unknown]
  - Epistaxis [Recovered/Resolved]
  - Weight increased [Recovering/Resolving]
  - Cough [Unknown]

NARRATIVE: CASE EVENT DATE: 2018
